FAERS Safety Report 25576377 (Version 1)
Quarter: 2025Q3

REPORT INFORMATION
  Report Type: Spontaneous
  Country: EU (occurrence: EU)
  Receive Date: 20250718
  Receipt Date: 20250718
  Transmission Date: 20251020
  Serious: Yes (Hospitalization)
  Sender: TEVA
  Company Number: None

PATIENT
  Age: 61 Year
  Sex: Male
  Weight: 82 kg

DRUGS (3)
  1. FLUOROURACIL [Suspect]
     Active Substance: FLUOROURACIL
     Indication: Nasopharyngeal cancer
     Route: 042
     Dates: start: 20130617
  2. CISPLATIN [Concomitant]
     Active Substance: CISPLATIN
     Indication: Nasopharyngeal cancer
     Route: 042
     Dates: start: 20130617
  3. TAXOTERE [Concomitant]
     Active Substance: DOCETAXEL
     Indication: Product used for unknown indication

REACTIONS (1)
  - Left ventricular failure [Recovered/Resolved]

NARRATIVE: CASE EVENT DATE: 20130618
